FAERS Safety Report 21198411 (Version 2)
Quarter: 2025Q2

REPORT INFORMATION
  Report Type: Spontaneous
  Country: ES (occurrence: ES)
  Receive Date: 20220811
  Receipt Date: 20250619
  Transmission Date: 20250717
  Serious: Yes (Hospitalization, Other)
  Sender: AUROBINDO
  Company Number: ES-Orion Corporation ORION PHARMA-LEV 2022-0018

PATIENT
  Age: 76 Year
  Sex: Male

DRUGS (8)
  1. EPLERENONE [Suspect]
     Active Substance: EPLERENONE
     Indication: Cardiac failure
     Route: 065
     Dates: start: 201801
  2. EPLERENONE [Suspect]
     Active Substance: EPLERENONE
  3. BISOPROLOL [Suspect]
     Active Substance: BISOPROLOL
     Indication: Cardiac failure
     Route: 065
     Dates: start: 201801
  4. SACUBITRIL\VALSARTAN [Suspect]
     Active Substance: SACUBITRIL\VALSARTAN
     Indication: Cardiac failure
     Route: 065
     Dates: start: 201801
  5. SACUBITRIL\VALSARTAN [Suspect]
     Active Substance: SACUBITRIL\VALSARTAN
  6. LEVOSIMENDAN [Suspect]
     Active Substance: LEVOSIMENDAN
     Indication: Cardiac failure
     Route: 065
     Dates: start: 201801
  7. LEVOSIMENDAN [Suspect]
     Active Substance: LEVOSIMENDAN
     Dates: start: 201908
  8. LEVOSIMENDAN [Suspect]
     Active Substance: LEVOSIMENDAN
     Dates: start: 201908

REACTIONS (3)
  - Ventricular tachycardia [Recovering/Resolving]
  - Cardiac failure [Recovering/Resolving]
  - Drug ineffective [Unknown]

NARRATIVE: CASE EVENT DATE: 20181001
